FAERS Safety Report 10216776 (Version 1)
Quarter: 2014Q2

REPORT INFORMATION
  Report Type: Spontaneous
  Country: US (occurrence: US)
  Receive Date: 20140604
  Receipt Date: 20140604
  Transmission Date: 20141212
  Serious: Yes (Hospitalization)
  Sender: FDA-Public Use
  Company Number: US-ASTRAZENECA-2014SE36377

PATIENT
  Age: 79 Year
  Sex: Male
  Weight: 86.2 kg

DRUGS (13)
  1. METOPROLOL [Suspect]
     Dosage: BID
     Route: 048
  2. PRILOSEC [Suspect]
     Route: 048
  3. TIKOSYN [Suspect]
     Indication: VENTRICULAR FIBRILLATION
     Dosage: BID
     Route: 048
     Dates: start: 201401
  4. TIKOSYN [Suspect]
     Indication: VENTRICULAR FIBRILLATION
     Route: 048
     Dates: start: 20140507
  5. ALTACE [Concomitant]
     Dosage: DAILY
  6. BABY ASPIRIN [Concomitant]
  7. CITALOPRAM [Concomitant]
     Dosage: DAILY
  8. VITAMINS [Concomitant]
     Dosage: DAILY
  9. COUMADIN [Concomitant]
  10. PLAVIX [Concomitant]
  11. ROPINIROLE [Concomitant]
     Indication: RESTLESS LEGS SYNDROME
     Dosage: THREE TIMES A DAY
  12. PREDNISONE [Concomitant]
     Dosage: THREE TIMES A DAY
  13. PANTOPRAZOLE [Concomitant]

REACTIONS (15)
  - Cerebrovascular accident [Unknown]
  - Ventricular fibrillation [Unknown]
  - Myocardial infarction [Unknown]
  - Cardiac arrest [Unknown]
  - Blood glucose increased [Unknown]
  - Cardiac disorder [Unknown]
  - Stomatitis [Unknown]
  - Oropharyngeal pain [Unknown]
  - Weight decreased [Unknown]
  - Body height decreased [Unknown]
  - Diabetes mellitus [Unknown]
  - Atrial fibrillation [Unknown]
  - Urticaria [Unknown]
  - Dyspnoea [Unknown]
  - Asthenia [Unknown]
